FAERS Safety Report 4409827-3 (Version None)
Quarter: 2004Q3

REPORT INFORMATION
  Report Type: 
  Country: None (occurrence: None)
  Receive Date: 20040728
  Receipt Date: 20040609
  Transmission Date: 20050211
  Serious: Yes (Other)
  Sender: FDA-Public Use
  Company Number: PHBS2004BR07763

PATIENT
  Sex: Female
  Weight: 50 kg

DRUGS (2)
  1. SYNTOCINON [Suspect]
  2. PLASIL [Suspect]

REACTIONS (6)
  - DRUG EXPOSURE VIA BREAST MILK [None]
  - MALAISE [None]
  - MENSTRUATION IRREGULAR [None]
  - PALPITATIONS [None]
  - SUPPRESSED LACTATION [None]
  - TACHYCARDIA [None]
